FAERS Safety Report 20855821 (Version 1)
Quarter: 2022Q2

REPORT INFORMATION
  Report Type: Spontaneous
  Country: US (occurrence: US)
  Receive Date: 20220520
  Receipt Date: 20220520
  Transmission Date: 20220721
  Serious: No
  Sender: FDA-Public Use
  Company Number: US-TEVA-2022-US-2032072

PATIENT
  Sex: Male

DRUGS (1)
  1. PODOFILOX [Suspect]
     Active Substance: PODOFILOX
     Dosage: 0.5 %,SOLUTION - TOPICAL
     Route: 065

REACTIONS (3)
  - Incorrect dose administered [Unknown]
  - Accidental exposure to product [Unknown]
  - Skin burning sensation [Unknown]
